FAERS Safety Report 6512316-3 (Version None)
Quarter: 2009Q4

REPORT INFORMATION
  Report Type: 
  Country: None (occurrence: None)
  Receive Date: 20091222
  Receipt Date: 20090810
  Transmission Date: 20100525
  Serious: Yes (Hospitalization)
  Sender: FDA-Public Use
  Company Number: US-ASTRAZENECA-2009UW18049

PATIENT
  Age: 65 Year
  Sex: Male

DRUGS (4)
  1. CRESTOR [Suspect]
     Route: 048
     Dates: start: 20080101, end: 20090622
  2. LISINOPRIL [Concomitant]
  3. ASPIRIN [Concomitant]
  4. METOPROLOL TARTRATE [Concomitant]
     Route: 048

REACTIONS (4)
  - ASTHENIA [None]
  - DIZZINESS [None]
  - HEADACHE [None]
  - PAIN [None]
